FAERS Safety Report 6138284-4 (Version None)
Quarter: 2009Q1

REPORT INFORMATION
  Report Type: 
  Country: None (occurrence: None)
  Receive Date: 20090331
  Receipt Date: 20090317
  Transmission Date: 20090719
  Serious: Yes (Hospitalization)
  Sender: FDA-Public Use
  Company Number: US-MEDIMMUNE-MEDI-0008115

PATIENT
  Sex: Male

DRUGS (5)
  1. SYNAGIS [Suspect]
     Dates: start: 20081101, end: 20090301
  2. SYNAGIS [Suspect]
     Dates: start: 20081101
  3. SYNAGIS [Suspect]
     Dates: start: 20081201
  4. SYNAGIS [Suspect]
     Dates: start: 20090101
  5. SYNAGIS [Suspect]
     Dates: start: 20090201

REACTIONS (2)
  - CONVULSION [None]
  - PYREXIA [None]
